FAERS Safety Report 15622469 (Version 2)
Quarter: 2019Q1

REPORT INFORMATION
  Report Type: Spontaneous
  Country: GB (occurrence: DK)
  Receive Date: 20181115
  Receipt Date: 20190215
  Transmission Date: 20190417
  Serious: Yes (Other)
  Sender: FDA-Public Use
  Company Number: DK-FRESENIUS KABI-FK201811685

PATIENT
  Age: 70 Year
  Sex: Female
  Weight: 49 kg

DRUGS (17)
  1. ZOLEDRONIC ACID [Suspect]
     Active Substance: ZOLEDRONIC ACID
     Indication: METASTASES TO BONE
     Route: 042
     Dates: start: 20180314, end: 20180905
  2. LONGOVITAL [Concomitant]
     Indication: VITAMIN SUPPLEMENTATION
     Route: 048
     Dates: start: 201801
  3. PANTOPRAZOLE TEVA [Concomitant]
     Active Substance: PANTOPRAZOLE SODIUM
     Indication: PROPHYLAXIS AGAINST GASTROINTESTINAL ULCER
     Route: 048
     Dates: start: 201801
  4. VOTRIENT [Concomitant]
     Active Substance: PAZOPANIB HYDROCHLORIDE
     Indication: METASTATIC RENAL CELL CARCINOMA
     Route: 048
     Dates: start: 20180215
  5. OXYCODONHYDROCHLORID ACTAVIS [Concomitant]
     Active Substance: OXYCODONE HYDROCHLORIDE
     Indication: PAIN
     Dosage: AS NECESSARY
     Route: 048
     Dates: start: 20180717
  6. PREDNISOLON DLF [Concomitant]
     Active Substance: PREDNISOLONE
     Indication: HORMONE THERAPY
     Route: 048
     Dates: start: 201801
  7. KALEORID [Concomitant]
     Active Substance: POTASSIUM CHLORIDE
     Indication: MINERAL SUPPLEMENTATION
     Route: 048
     Dates: start: 2016
  8. FENTANYL SANDOZ [Concomitant]
     Active Substance: FENTANYL
     Indication: PAIN
     Route: 048
     Dates: start: 201802
  9. ALENDRONAT [Suspect]
     Active Substance: ALENDRONATE SODIUM
     Route: 065
     Dates: start: 20180314
  10. IMOCLONE [Concomitant]
     Active Substance: ZOPICLONE
     Indication: SLEEP DISORDER
     Route: 048
     Dates: start: 20180619
  11. ALENDRONAT [Suspect]
     Active Substance: ALENDRONATE SODIUM
     Indication: OSTEOPOROSIS
     Route: 048
     Dates: start: 20130827, end: 20180215
  12. CORODIL COMP [Concomitant]
     Active Substance: ENALAPRIL MALEATE\HYDROCHLOROTHIAZIDE
     Indication: HYPERTENSION
     Route: 048
     Dates: start: 20161214
  13. PAMOL [Concomitant]
     Active Substance: ACETAMINOPHEN
     Indication: PAIN
     Route: 048
     Dates: start: 201802
  14. CITALOPRAM ORION [Concomitant]
     Active Substance: CITALOPRAM HYDROBROMIDE
     Indication: DEPRESSION
     Route: 048
     Dates: start: 20180316
  15. OXABENZ [Concomitant]
     Active Substance: OXAZEPAM
     Indication: ANXIETY
     Dosage: 15 MG. DOSE: 0.5 TABLET WHEN NEEDED 4 TIMES DAILY AT THE MOST
     Route: 048
     Dates: start: 201803
  16. DETRUSITOL [Concomitant]
     Active Substance: TOLTERODINE TARTRATE
     Indication: HYPERTONIC BLADDER
     Route: 048
     Dates: start: 20150515
  17. CALCIUM OG D-VITAMIN [Concomitant]
     Indication: OSTEOPOROSIS
     Route: 048
     Dates: start: 2013

REACTIONS (5)
  - Tooth loss [Not Recovered/Not Resolved]
  - Osteonecrosis of jaw [Not Recovered/Not Resolved]
  - Exposed bone in jaw [Not Recovered/Not Resolved]
  - Toothache [Not Recovered/Not Resolved]
  - Dental alveolar anomaly [Not Recovered/Not Resolved]

NARRATIVE: CASE EVENT DATE: 201808
